FAERS Safety Report 10210241 (Version 1)
Quarter: 2014Q2

REPORT INFORMATION
  Report Type: Spontaneous
  Country: US (occurrence: None)
  Receive Date: 20140528
  Receipt Date: 20140528
  Transmission Date: 20141212
  Serious: Yes (Other)
  Sender: FDA-Public Use
  Company Number: 2014AP003089

PATIENT
  Age: 46 Year
  Sex: Male

DRUGS (8)
  1. ZONISAMIDE [Suspect]
     Indication: EPILEPSY
  2. LEVETIRACETAM (LEVETIRACETAM) [Suspect]
     Indication: EPILEPSY
  3. TOPIRAMATE (TOPIRAMATE) [Suspect]
     Indication: EPILEPSY
  4. LAMOTRIGINE [Suspect]
     Indication: EPILEPSY
  5. VALPROIC ACID [Suspect]
  6. PHENYTOIN (PHENYTOIN) [Suspect]
  7. GABAPENTIN (GABAPENTIN) [Concomitant]
  8. CLONAZEPAM (CLONAZEPAM) [Concomitant]

REACTIONS (3)
  - Craniocerebral injury [None]
  - Status epilepticus [None]
  - Drug ineffective [None]
